FAERS Safety Report 19108562 (Version 1)
Quarter: 2021Q2

REPORT INFORMATION
  Report Type: Spontaneous
  Country: US (occurrence: US)
  Receive Date: 20210408
  Receipt Date: 20210408
  Transmission Date: 20210717
  Serious: Yes (Other)
  Sender: FDA-Public Use
  Company Number: US-BRECKENRIDGE PHARMACEUTICAL, INC.-2109068

PATIENT
  Age: 35 Year
  Sex: Female
  Weight: 86.36 kg

DRUGS (1)
  1. DULOXETINE. [Suspect]
     Active Substance: DULOXETINE
     Indication: NEURALGIA
     Route: 048

REACTIONS (28)
  - Dizziness [None]
  - Pain [None]
  - Tremor [None]
  - Temperature intolerance [None]
  - Anxiety [None]
  - Electric shock sensation [None]
  - Nausea [None]
  - Arthralgia [None]
  - Abnormal weight gain [None]
  - Paranoia [None]
  - Chest discomfort [None]
  - Dyspnoea [None]
  - Vomiting [None]
  - Serotonin syndrome [None]
  - Palpitations [None]
  - Antidepressant discontinuation syndrome [None]
  - Feeling abnormal [None]
  - Emotional disorder [None]
  - Muscle rigidity [None]
  - Abdominal pain [None]
  - Mood altered [None]
  - Chest pain [None]
  - Drug titration [None]
  - Blood pressure fluctuation [None]
  - Fatigue [None]
  - Liver injury [None]
  - Musculoskeletal stiffness [None]
  - Fall [None]
